FAERS Safety Report 4890458-6 (Version None)
Quarter: 2005Q4

REPORT INFORMATION
  Report Type: 
  Country: None (occurrence: None)
  Receive Date: 20051216
  Receipt Date: 20050916
  Transmission Date: 20060501
  Serious: No
  Sender: FDA-Public Use
  Company Number: BDI-007524

PATIENT
  Age: 28 Year
  Sex: Female
  Weight: 105 kg

DRUGS (2)
  1. MULTIHANCE [Suspect]
     Indication: ANGIOGRAM
     Dosage: 40 ML ONCE IV
     Route: 042
     Dates: start: 20050908, end: 20050908
  2. MULTIHANCE [Suspect]
     Indication: ORGAN DONOR
     Dosage: 40 ML ONCE IV
     Route: 042
     Dates: start: 20050908, end: 20050908

REACTIONS (2)
  - BLISTER [None]
  - URTICARIA [None]
